FAERS Safety Report 9457020 (Version 1)
Quarter: 2013Q3

REPORT INFORMATION
  Report Type: Spontaneous
  Country: US (occurrence: US)
  Receive Date: 20130814
  Receipt Date: 20130814
  Transmission Date: 20140515
  Serious: Yes (Death, Other)
  Sender: FDA-Public Use
  Company Number: US-JNJFOC-20130804230

PATIENT
  Age: 59 Year
  Sex: Male
  Weight: 63.5 kg

DRUGS (3)
  1. LISTERINE MOUTHWASH UNSPECIFIED [Suspect]
     Indication: PRODUCT USED FOR UNKNOWN INDICATION
     Route: 048
     Dates: end: 20130803
  2. OXYCODONE [Concomitant]
     Indication: PAIN
     Route: 065
  3. PERCOCET [Concomitant]
     Indication: MUSCLE RELAXANT THERAPY
     Route: 065

REACTIONS (3)
  - Drug abuse [Fatal]
  - Drug diversion [Fatal]
  - Drug dependence [Fatal]
